FAERS Safety Report 22816923 (Version 2)
Quarter: 2023Q4

REPORT INFORMATION
  Report Type: Report from Study
  Country: US (occurrence: US)
  Receive Date: 20230812
  Receipt Date: 20231123
  Transmission Date: 20240110
  Serious: Yes (Other)
  Sender: FDA-Public Use
  Company Number: US-JNJFOC-20230807821

PATIENT
  Age: 65 Year
  Sex: Male
  Weight: 91.2 kg

DRUGS (1)
  1. CILTACABTAGENE AUTOLEUCEL [Suspect]
     Active Substance: CILTACABTAGENE AUTOLEUCEL
     Indication: Plasma cell myeloma
     Route: 065
     Dates: start: 20230112

REACTIONS (8)
  - Cytokine release syndrome [Recovering/Resolving]
  - Alanine aminotransferase abnormal [Recovering/Resolving]
  - Aspartate aminotransferase increased [Recovering/Resolving]
  - Fatigue [Unknown]
  - Headache [Unknown]
  - Hypoalbuminaemia [Unknown]
  - Micrographia [Unknown]
  - Slow speech [Unknown]

NARRATIVE: CASE EVENT DATE: 20230114
